FAERS Safety Report 5308695-5 (Version None)
Quarter: 2007Q2

REPORT INFORMATION
  Report Type: 
  Country: None (occurrence: None)
  Receive Date: 20070426
  Receipt Date: 20070420
  Transmission Date: 20071010
  Serious: Yes (Other)
  Sender: FDA-Public Use
  Company Number: JP-JPN-A200700998

PATIENT
  Age: 22 Year
  Sex: Female

DRUGS (4)
  1. PAXIL [Suspect]
     Indication: POST-TRAUMATIC STRESS DISORDER
     Route: 048
     Dates: start: 20050801, end: 20070214
  2. SOLANAX [Suspect]
     Indication: DRUG USE FOR UNKNOWN INDICATION
     Route: 048
  3. LENDORMIN [Suspect]
     Indication: INSOMNIA
     Dosage: .125MG PER DAY
     Route: 048
     Dates: start: 20051001, end: 20070220
  4. RESLIN [Concomitant]
     Indication: INSOMNIA
     Dosage: 25MG PER DAY
     Route: 048
     Dates: start: 20060101, end: 20070220

REACTIONS (6)
  - ABORTION SPONTANEOUS [None]
  - DRUG EXPOSURE DURING PREGNANCY [None]
  - FOETAL MALFORMATION [None]
  - NAUSEA [None]
  - PLACENTAL INSUFFICIENCY [None]
  - PREGNANCY [None]
